FAERS Safety Report 5772169-8 (Version None)
Quarter: 2008Q2

REPORT INFORMATION
  Report Type: 
  Country: None (occurrence: None)
  Receive Date: 20080613
  Receipt Date: 20080605
  Transmission Date: 20081010
  Serious: Yes (Hospitalization)
  Sender: FDA-Public Use
  Company Number: US-ROCHE-549507

PATIENT
  Sex: Female

DRUGS (2)
  1. VESANOID [Suspect]
     Dosage: THE PATIENT WAS RECEIVING THE ORAL TRETINOIN VIA A NASOGASTRIC (NG) TUBE WHILE IN THE ICU.
     Route: 048
     Dates: end: 20080315
  2. VESANOID [Suspect]
     Route: 048
     Dates: start: 20080401

REACTIONS (2)
  - CAECITIS [None]
  - LARGE INTESTINE PERFORATION [None]
